FAERS Safety Report 4305823-5 (Version None)
Quarter: 2004Q1

REPORT INFORMATION
  Report Type: 
  Country: None (occurrence: None)
  Receive Date: 20040226
  Receipt Date: 20040226
  Transmission Date: 20041129
  Serious: Yes (Disabling)
  Sender: FDA-Public Use
  Company Number: None

PATIENT
  Sex: Male
  Weight: 108.8633 kg

DRUGS (2)
  1. CLARITHROMYCIN [Suspect]
     Indication: COUGH
     Dosage: 500 MG BID ORAL
     Route: 048
     Dates: start: 20040127, end: 20040223
  2. ZOCOR [Suspect]
     Indication: HYPERLIPIDAEMIA
     Dosage: 80 MG DAILY ORAL
     Route: 048
     Dates: start: 20040127, end: 20040223

REACTIONS (3)
  - ASTHENIA [None]
  - HEPATITIS [None]
  - RHABDOMYOLYSIS [None]
